FAERS Safety Report 4521864-7 (Version None)
Quarter: 2004Q4

REPORT INFORMATION
  Report Type: 
  Country: None (occurrence: None)
  Receive Date: 20041207
  Receipt Date: 20041122
  Transmission Date: 20050328
  Serious: Yes (Other)
  Sender: FDA-Public Use
  Company Number: 2004-0007780

PATIENT
  Sex: Male
  Weight: 3.7 kg

DRUGS (3)
  1. TENOFOVIR DISOPROXIL FUMARATE (TENOFOVIR DISOPROXIL FUMARATE) [Suspect]
     Indication: PROPHYLAXIS AGAINST HIV INFECTION
     Dosage: 600 MG, ONCE
     Dates: start: 20041018, end: 20041018
  2. AZT [Concomitant]
  3. PCN (BENZYLPENICILIN SODIUM) [Concomitant]

REACTIONS (3)
  - ASPARTATE AMINOTRANSFERASE INCREASED [None]
  - DRUG EXPOSURE DURING PREGNANCY [None]
  - HYPERBILIRUBINAEMIA NEONATAL [None]
